FAERS Safety Report 9380136 (Version 1)
Quarter: 2013Q2

REPORT INFORMATION
  Report Type: Spontaneous
  Country: FR (occurrence: None)
  Receive Date: 20130628
  Receipt Date: 20130628
  Transmission Date: 20140414
  Serious: Yes (Hospitalization)
  Sender: FDA-Public Use
  Company Number: 1745134

PATIENT
  Age: 56 Year
  Sex: Male

DRUGS (3)
  1. CARBOPLATIN [Suspect]
     Indication: PRODUCT USED FOR UNKNOWN INDICATION
     Dosage: INTRAVENOUS (NOT OTHERWISE SPECIFIED)
     Route: 042
     Dates: start: 20110704
  2. GEMCITABINE [Suspect]
     Indication: PRODUCT USED FOR UNKNOWN INDICATION
     Dosage: INTRAVENOUS (NOT OTHERWISE SPECIFIED)
     Route: 042
     Dates: start: 20110704, end: 20110709
  3. NEORECORMON [Concomitant]

REACTIONS (10)
  - Renal failure acute [None]
  - Thrombotic microangiopathy [None]
  - Cardiogenic shock [None]
  - Acute coronary syndrome [None]
  - Haemolytic anaemia [None]
  - Hydronephrosis [None]
  - Thrombocytopenia [None]
  - Cardiac failure [None]
  - Proteinuria [None]
  - Nephropathy toxic [None]
